FAERS Safety Report 10190559 (Version 1)
Quarter: 2014Q2

REPORT INFORMATION
  Report Type: Spontaneous
  Country: DE (occurrence: DE)
  Receive Date: 20140523
  Receipt Date: 20140523
  Transmission Date: 20141212
  Serious: Yes (Congenital Anomaly)
  Sender: FDA-Public Use
  Company Number: GXKR2014DE001949

PATIENT
  Sex: 0

DRUGS (5)
  1. LAMOTRIGIN HEXAL [Suspect]
     Indication: EPILEPSY
     Dosage: 200 [MG/D ]
     Route: 064
  2. CONVULSOFIN [Suspect]
     Indication: EPILEPSY
     Dosage: 530 [MG/D ]
     Route: 064
  3. VIANI [Concomitant]
     Indication: ASTHMA
     Dosage: 100 [?G/D (2X50) ] / 1000 [?G/D (2X500) ]
     Route: 064
  4. TROMPHYLLIN [Concomitant]
     Indication: ASTHMA
     Route: 064
  5. PREDNISOLON [Concomitant]
     Indication: ASTHMA
     Route: 064

REACTIONS (3)
  - Hydrocephalus [Not Recovered/Not Resolved]
  - Spina bifida [Not Recovered/Not Resolved]
  - Maternal drugs affecting foetus [None]
